FAERS Safety Report 19921837 (Version 1)
Quarter: 2021Q4

REPORT INFORMATION
  Report Type: Spontaneous
  Country: US (occurrence: US)
  Receive Date: 20211005
  Receipt Date: 20211005
  Transmission Date: 20220304
  Serious: No
  Sender: FDA-Public Use
  Company Number: US-SA-SAC20211001000640

PATIENT
  Age: 50 Year
  Sex: Male

DRUGS (2)
  1. DUPIXENT [Suspect]
     Active Substance: DUPILUMAB
     Indication: Nasal polyps
     Dosage: 300 MG, QOW
     Route: 058
  2. COVID-19 VACCINE NOS [Suspect]
     Active Substance: COVID-19 VACCINE NOS
     Indication: COVID-19 immunisation

REACTIONS (6)
  - Headache [Unknown]
  - Malaise [Unknown]
  - Sinus disorder [Recovering/Resolving]
  - Paranasal sinus discomfort [Unknown]
  - Paranasal sinus hypersecretion [Unknown]
  - Illness [Unknown]

NARRATIVE: CASE EVENT DATE: 20210913
